FAERS Safety Report 21048013 (Version 1)
Quarter: 2022Q3

REPORT INFORMATION
  Report Type: Report from Study
  Country: None (occurrence: US)
  Receive Date: 20220706
  Receipt Date: 20220706
  Transmission Date: 20221026
  Serious: Yes (Hospitalization)
  Sender: FDA-Public Use
  Company Number: US-XGen Pharmaceuticals DJB, Inc.-2130584

PATIENT
  Age: 54 Year
  Sex: Female

DRUGS (1)
  1. HYDRALAZINE HYDROCHLORIDE [Suspect]
     Active Substance: HYDRALAZINE HYDROCHLORIDE

REACTIONS (1)
  - Drug-induced liver injury [Recovered/Resolved with Sequelae]
